FAERS Safety Report 7298823-7 (Version None)
Quarter: 2011Q2

REPORT INFORMATION
  Report Type: 
  Country: None (occurrence: None)
  Receive Date: 20110207
  Receipt Date: 20110120
  Transmission Date: 20111010
  Serious: Yes (Hospitalization, Other)
  Sender: FDA-Public Use
  Company Number: ACO_ 21557_2011

PATIENT
  Age: 40 Year
  Sex: Female

DRUGS (1)
  1. AMPYRA [Suspect]
     Indication: PRODUCT USED FOR UNKNOWN INDICATION
     Dosage: 10 MG, BID, ORAL
     Route: 048
     Dates: start: 20101029, end: 20110107

REACTIONS (3)
  - RENAL DISORDER [None]
  - BLOOD CREATININE INCREASED [None]
  - URINARY TRACT INFECTION [None]
